FAERS Safety Report 7176753-9 (Version None)
Quarter: 2010Q4

REPORT INFORMATION
  Report Type: 
  Country: None (occurrence: None)
  Receive Date: 20101220
  Receipt Date: 20101210
  Transmission Date: 20110411
  Serious: Yes (Other)
  Sender: FDA-Public Use
  Company Number: JP-PFIZER INC-2010169579

PATIENT
  Age: 57 Year
  Sex: Male

DRUGS (9)
  1. GABAPENTIN [Suspect]
     Indication: PAIN
     Dosage: 600 MG, DAILY
     Route: 048
     Dates: start: 20101115
  2. OXINORM [Concomitant]
     Dosage: UNK
     Route: 048
  3. OXYCONTIN [Concomitant]
     Dosage: UNK
     Route: 048
  4. NOVAMIN [Concomitant]
     Dosage: UNK
     Route: 048
  5. METHYCOBAL [Concomitant]
     Dosage: UNK
     Route: 048
  6. VOLTAREN [Concomitant]
     Dosage: UNK
     Route: 048
  7. EVAMYL [Concomitant]
     Dosage: UNK
     Route: 048
  8. ALFAROL [Concomitant]
     Dosage: UNK
     Route: 048
  9. TAMSULOSIN HCL [Concomitant]
     Dosage: UNK
     Route: 048

REACTIONS (3)
  - C-REACTIVE PROTEIN INCREASED [None]
  - HEPATIC FUNCTION ABNORMAL [None]
  - PYREXIA [None]
